FAERS Safety Report 19474527 (Version 3)
Quarter: 2021Q3

REPORT INFORMATION
  Report Type: Other
  Country: RU (occurrence: RU)
  Receive Date: 20210630
  Receipt Date: 20210806
  Transmission Date: 20211014
  Serious: Yes (Other)
  Sender: FDA-Public Use
  Company Number: RU-ROCHE-2855494

PATIENT

DRUGS (10)
  1. TOCILIZUMAB. [Suspect]
     Active Substance: TOCILIZUMAB
     Indication: PROPHYLAXIS AGAINST GRAFT VERSUS HOST DISEASE
     Route: 065
  2. THIOTEPA. [Suspect]
     Active Substance: THIOTEPA
     Indication: PROPHYLAXIS AGAINST TRANSPLANT REJECTION
     Route: 065
  3. TREOSULFAN [Suspect]
     Active Substance: TREOSULFAN
     Indication: PROPHYLAXIS AGAINST TRANSPLANT REJECTION
     Route: 065
  4. FLUDARABINE [Suspect]
     Active Substance: FLUDARABINE PHOSPHATE
     Indication: PROPHYLAXIS AGAINST TRANSPLANT REJECTION
     Route: 065
  5. MYCOPHENOLATE MOFETIL. [Suspect]
     Active Substance: MYCOPHENOLATE MOFETIL
     Indication: PROPHYLAXIS AGAINST GRAFT VERSUS HOST DISEASE
     Route: 065
  6. RITUXIMAB. [Suspect]
     Active Substance: RITUXIMAB
     Indication: POST TRANSPLANT LYMPHOPROLIFERATIVE DISORDER
     Dosage: 100?375 MG/M2
     Route: 041
  7. MELPHALAN. [Suspect]
     Active Substance: MELPHALAN
     Indication: PROPHYLAXIS AGAINST TRANSPLANT REJECTION
     Route: 065
  8. ABATACEPT [Suspect]
     Active Substance: ABATACEPT
     Indication: PROPHYLAXIS AGAINST GRAFT VERSUS HOST DISEASE
     Route: 065
  9. CYCLOPHOSPHAMIDE. [Suspect]
     Active Substance: CYCLOPHOSPHAMIDE
     Indication: PROPHYLAXIS AGAINST GRAFT VERSUS HOST DISEASE
     Route: 065
  10. TACROLIMUS. [Suspect]
     Active Substance: TACROLIMUS
     Indication: PROPHYLAXIS AGAINST GRAFT VERSUS HOST DISEASE
     Route: 065

REACTIONS (3)
  - Dermatitis [Unknown]
  - Venoocclusive disease [Unknown]
  - Stomatitis [Unknown]
